FAERS Safety Report 14520492 (Version 1)
Quarter: 2018Q1

REPORT INFORMATION
  Report Type: Report from Study
  Country: US (occurrence: US)
  Receive Date: 20180212
  Receipt Date: 20180212
  Transmission Date: 20180509
  Serious: Yes (Hospitalization, Other)
  Sender: FDA-Public Use
  Company Number: US-AMAG PHARMACEUTICALS, INC.-AMAG201703086

PATIENT

DRUGS (3)
  1. ASA [Concomitant]
     Active Substance: ASPIRIN
     Indication: PRE-ECLAMPSIA
     Dosage: 81 MG, UNK
     Route: 065
     Dates: end: 20170901
  2. MAKENA [Suspect]
     Active Substance: HYDROXYPROGESTERONE CAPROATE
     Indication: PREMATURE LABOUR
     Dosage: 250 MG/ML, WEEKLY
     Route: 030
     Dates: start: 20170620, end: 20170919
  3. PRENATAL VITAMINS [Concomitant]
     Active Substance: VITAMINS
     Indication: PREGNANCY
     Dosage: 1 TABS, QD
     Route: 048

REACTIONS (5)
  - Premature delivery [Recovered/Resolved]
  - Pre-eclampsia [Recovered/Resolved]
  - Drug dose omission [Unknown]
  - Placental chorioangioma [Recovered/Resolved]
  - Labour induction [Recovered/Resolved]

NARRATIVE: CASE EVENT DATE: 20170712
